FAERS Safety Report 16356901 (Version 2)
Quarter: 2019Q2

REPORT INFORMATION
  Report Type: Spontaneous
  Country: US (occurrence: US)
  Receive Date: 20190527
  Receipt Date: 20190531
  Transmission Date: 20190711
  Serious: Yes (Death, Other)
  Sender: FDA-Public Use
  Company Number: US-ASTRAZENECA-2018SF34394

PATIENT
  Age: 16467 Day
  Sex: Male

DRUGS (32)
  1. PRILOSEC [Suspect]
     Active Substance: OMEPRAZOLE MAGNESIUM
     Route: 048
     Dates: start: 2004, end: 2013
  2. PRILOSEC [Suspect]
     Active Substance: OMEPRAZOLE MAGNESIUM
     Dosage: OMEPRAZOLE
     Route: 048
     Dates: start: 20100810
  3. PRILOSEC OTC [Concomitant]
     Active Substance: OMEPRAZOLE MAGNESIUM
  4. PROMETHAZINE [Concomitant]
     Active Substance: PROMETHAZINE\PROMETHAZINE HYDROCHLORIDE
  5. BUSPIRONE HYDROCHLORIDE. [Concomitant]
     Active Substance: BUSPIRONE HYDROCHLORIDE
  6. PRILOSEC [Suspect]
     Active Substance: OMEPRAZOLE MAGNESIUM
     Route: 048
     Dates: start: 20190403
  7. FUROSEMIDE. [Concomitant]
     Active Substance: FUROSEMIDE
  8. LORATADINE. [Concomitant]
     Active Substance: LORATADINE
  9. BENICAR [Concomitant]
     Active Substance: OLMESARTAN MEDOXOMIL
  10. CLONIDINE. [Concomitant]
     Active Substance: CLONIDINE
  11. AVINZA [Concomitant]
     Active Substance: MORPHINE SULFATE
  12. NASONEX [Concomitant]
     Active Substance: MOMETASONE FUROATE
  13. VENTOLIN [Concomitant]
     Active Substance: ALBUTEROL SULFATE
  14. PANTOPRAZOLE SODIUM. [Concomitant]
     Active Substance: PANTOPRAZOLE SODIUM
  15. LEXAPRO [Concomitant]
     Active Substance: ESCITALOPRAM OXALATE
  16. DELSYM [Concomitant]
     Active Substance: DEXTROMETHORPHAN
  17. GABAPENTIN. [Concomitant]
     Active Substance: GABAPENTIN
  18. PROAMATINE [Concomitant]
     Active Substance: MIDODRINE HYDROCHLORIDE
  19. PROTONIX [Concomitant]
     Active Substance: PANTOPRAZOLE SODIUM
  20. LOTEMAX [Concomitant]
     Active Substance: LOTEPREDNOL ETABONATE
  21. NAPROXEN. [Concomitant]
     Active Substance: NAPROXEN
  22. LOTREL [Concomitant]
     Active Substance: AMLODIPINE BESYLATE\BENAZEPRIL HYDROCHLORIDE
  23. KLOR-CON [Concomitant]
     Active Substance: POTASSIUM CHLORIDE
  24. COMBIVENT [Concomitant]
     Active Substance: ALBUTEROL SULFATE\IPRATROPIUM BROMIDE
  25. CLONAZEPAM. [Concomitant]
     Active Substance: CLONAZEPAM
  26. CITALOPRAM [Concomitant]
     Active Substance: CITALOPRAM HYDROBROMIDE
  27. ARANESP [Concomitant]
     Active Substance: DARBEPOETIN ALFA
  28. CATAPRES [Concomitant]
     Active Substance: CLONIDINE HYDROCHLORIDE
  29. KADIAN [Concomitant]
     Active Substance: MORPHINE SULFATE
  30. ALLOPURINOL. [Concomitant]
     Active Substance: ALLOPURINOL
  31. CORTROSYN [Concomitant]
     Active Substance: COSYNTROPIN
  32. VERSED [Concomitant]
     Active Substance: MIDAZOLAM HYDROCHLORIDE

REACTIONS (6)
  - Chronic kidney disease [Unknown]
  - End stage renal disease [Unknown]
  - Acute kidney injury [Unknown]
  - Nephrogenic anaemia [Unknown]
  - Renal failure [Unknown]
  - Death [Fatal]

NARRATIVE: CASE EVENT DATE: 20110702
